FAERS Safety Report 10251471 (Version 4)
Quarter: 2014Q3

REPORT INFORMATION
  Report Type: Spontaneous
  Country: BR (occurrence: BR)
  Receive Date: 20140623
  Receipt Date: 20140813
  Transmission Date: 20150326
  Serious: Yes (Other)
  Sender: FDA-Public Use
  Company Number: BR-UCBSA-2014000198

PATIENT
  Age: 62 Year
  Sex: Female
  Weight: 87 kg

DRUGS (6)
  1. CIMZIA [Suspect]
     Active Substance: CERTOLIZUMAB PEGOL
     Indication: RHEUMATOID ARTHRITIS
     Dosage: 200MG/ML
     Route: 058
     Dates: start: 201312, end: 201404
  2. ASA [Concomitant]
     Active Substance: ASPIRIN
     Dosage: UNK
     Route: 048
     Dates: start: 201312
  3. SIMVASTATIN. [Concomitant]
     Active Substance: SIMVASTATIN
     Dosage: UNK
     Route: 048
     Dates: start: 201312
  4. CLOPIDOGREL BISULFATE. [Concomitant]
     Active Substance: CLOPIDOGREL BISULFATE
     Dosage: UNK
     Route: 048
     Dates: start: 201312
  5. SELOZOK [Suspect]
     Active Substance: METOPROLOL SUCCINATE
     Indication: ISCHAEMIC HEART DISEASE PROPHYLAXIS
     Dosage: 100 MG DAILY, TABLET CONTROLLED RELEASE
     Route: 048
     Dates: start: 201312
  6. ENALAPRIL MALEATE. [Concomitant]
     Active Substance: ENALAPRIL MALEATE
     Dosage: 5MG
     Route: 048
     Dates: start: 201312

REACTIONS (5)
  - Arthralgia [Not Recovered/Not Resolved]
  - Drug dose omission [Unknown]
  - Gait disturbance [Unknown]
  - Dysstasia [Unknown]
  - Swelling [Unknown]

NARRATIVE: CASE EVENT DATE: 2014
